FAERS Safety Report 5259179-4 (Version None)
Quarter: 2007Q1

REPORT INFORMATION
  Report Type: 
  Country: None (occurrence: None)
  Receive Date: 20070308
  Receipt Date: 20070227
  Transmission Date: 20070707
  Serious: Yes (Other)
  Sender: FDA-Public Use
  Company Number: AU-BRISTOL-MYERS SQUIBB COMPANY-13700604

PATIENT

DRUGS (1)
  1. BARACLUDE [Suspect]
     Route: 048

REACTIONS (1)
  - BLOOD HIV RNA DECREASED [None]
